FAERS Safety Report 18957225 (Version 1)
Quarter: 2021Q1

REPORT INFORMATION
  Report Type: Spontaneous
  Country: GB (occurrence: GB)
  Receive Date: 20210302
  Receipt Date: 20210302
  Transmission Date: 20210420
  Serious: Yes (Hospitalization)
  Sender: FDA-Public Use
  Company Number: GB-SA-2018SA125238

PATIENT
  Age: 48 Year
  Sex: Female

DRUGS (23)
  1. TRASTUZUMAB. [Suspect]
     Active Substance: TRASTUZUMAB
     Dosage: 346.5 MG, Q3W
     Route: 042
     Dates: start: 20150327, end: 20160122
  2. TRASTUZUMAB. [Suspect]
     Active Substance: TRASTUZUMAB
     Dosage: 336 MG, Q3W
     Route: 042
     Dates: start: 20160122, end: 20161014
  3. TRASTUZUMAB EMTANSINE [Suspect]
     Active Substance: ADO-TRASTUZUMAB EMTANSINE
     Dosage: 164 MG, Q3W
     Route: 042
     Dates: start: 20171124
  4. METOCLOPRAMIDE. [Concomitant]
     Active Substance: METOCLOPRAMIDE
     Dosage: 20 MG
     Route: 042
     Dates: start: 20161118, end: 20161118
  5. ONDANSETRON [Concomitant]
     Active Substance: ONDANSETRON
     Dosage: 8 ML
     Route: 048
     Dates: start: 20150327, end: 20150619
  6. TRASTUZUMAB EMTANSINE [Suspect]
     Active Substance: ADO-TRASTUZUMAB EMTANSINE
     Dosage: 200 MG, Q3W
     Route: 042
     Dates: start: 20170224, end: 20170623
  7. PERTUZUMAB. [Suspect]
     Active Substance: PERTUZUMAB
     Dosage: 420 MG, Q3W
     Route: 042
     Dates: start: 20150327, end: 20161014
  8. ITRACONAZOLE. [Concomitant]
     Active Substance: ITRACONAZOLE
     Dosage: 200 MG, BID
     Route: 048
     Dates: start: 20150708, end: 20150909
  9. DOCETAXEL. [Suspect]
     Active Substance: DOCETAXEL
     Dosage: 110 MG,Q3W
     Route: 042
     Dates: start: 20150327, end: 20150619
  10. CAPECITABINE. [Suspect]
     Active Substance: CAPECITABINE
     Indication: BREAST CANCER METASTATIC
     Dosage: 1300 MG
     Route: 048
     Dates: start: 20200120, end: 20200131
  11. TRASTUZUMAB EMTANSINE [Suspect]
     Active Substance: ADO-TRASTUZUMAB EMTANSINE
     Indication: BREAST CANCER METASTATIC
     Dosage: 240 MG,Q3W
     Route: 042
     Dates: start: 20161118, end: 20170127
  12. NERATINIB [Suspect]
     Active Substance: NERATINIB
     Indication: BREAST CANCER METASTATIC
     Dosage: 240 MG, QD
     Route: 048
     Dates: start: 20200122
  13. ENOXAPARIN [Concomitant]
     Active Substance: ENOXAPARIN
     Dosage: 20 MG, QD
     Route: 058
     Dates: start: 20170609, end: 20170613
  14. ENOXAPARIN [Concomitant]
     Active Substance: ENOXAPARIN
     Dosage: 40 MG, QD
     Route: 058
     Dates: start: 20170613, end: 20170615
  15. NYSTATIN. [Concomitant]
     Active Substance: NYSTATIN
     Dosage: 1 ML, QID
     Route: 048
     Dates: start: 20170613, end: 20170626
  16. DOCETAXEL. [Suspect]
     Active Substance: DOCETAXEL
     Indication: BREAST CANCER METASTATIC
     Dosage: 120 MG,Q3W
     Route: 042
     Dates: start: 20150306, end: 20150306
  17. TRASTUZUMAB. [Suspect]
     Active Substance: TRASTUZUMAB
     Indication: BREAST CANCER METASTATIC
     Dosage: 451.5 MG, Q3W (LOADING DOSE)
     Route: 042
     Dates: start: 20150305, end: 20150305
  18. TRASTUZUMAB EMTANSINE [Suspect]
     Active Substance: ADO-TRASTUZUMAB EMTANSINE
     Dosage: 180 MG, Q3W
     Route: 042
     Dates: start: 20170721, end: 20171103
  19. PERTUZUMAB. [Suspect]
     Active Substance: PERTUZUMAB
     Indication: BREAST CANCER METASTATIC
     Dosage: 840 MG, Q3W (LOADING DOSE)
     Route: 042
     Dates: start: 20150305, end: 20150305
  20. DENOSUMAB [Concomitant]
     Active Substance: DENOSUMAB
     Indication: METASTASES TO BONE
     Dosage: UNK UNK, QM
     Route: 058
     Dates: start: 201609
  21. DENOSUMAB [Concomitant]
     Active Substance: DENOSUMAB
     Dosage: 6 MONTH
     Route: 058
     Dates: start: 20191220
  22. NITROFURANTOIN. [Concomitant]
     Active Substance: NITROFURANTOIN
     Dosage: UNK
     Route: 048
     Dates: start: 20190424, end: 20190427
  23. ONDANSETRON [Concomitant]
     Active Substance: ONDANSETRON
     Dosage: 8 ML
     Route: 048
     Dates: start: 20161216

REACTIONS (6)
  - Ejection fraction decreased [Recovered/Resolved]
  - Nasopharyngitis [Recovered/Resolved]
  - Thirst [Recovered/Resolved]
  - Headache [Recovering/Resolving]
  - Nausea [Recovered/Resolved]
  - Vomiting [Recovered/Resolved]

NARRATIVE: CASE EVENT DATE: 201601
